FAERS Safety Report 7293565-6 (Version None)
Quarter: 2011Q1

REPORT INFORMATION
  Report Type: 
  Country: None (occurrence: None)
  Receive Date: 20110202
  Receipt Date: 20110119
  Transmission Date: 20110831
  Serious: Yes (Hospitalization)
  Sender: FDA-Public Use
  Company Number: 2011000423

PATIENT
  Age: 66 Year
  Sex: Female

DRUGS (1)
  1. ERLOTINIB (ERLOTINIB) (TABLET) (ERLOTINIB) [Suspect]
     Indication: NON-SMALL CELL LUNG CANCER
     Dosage: 150 MG, ORAL
     Route: 048
     Dates: start: 20091120

REACTIONS (8)
  - MENTAL STATUS CHANGES [None]
  - PLEURAL EFFUSION [None]
  - PHYSICAL ASSAULT [None]
  - DYSPHORIA [None]
  - HAEMOGLOBIN DECREASED [None]
  - IMPULSE-CONTROL DISORDER [None]
  - BLOOD TESTOSTERONE INCREASED [None]
  - DIVORCED [None]
